FAERS Safety Report 7287991 (Version 2)
Quarter: 2014Q1

REPORT INFORMATION
  Report Type: Spontaneous
  Country: US (occurrence: US)
  Receive Date: 20100222
  Receipt Date: 20140213
  Transmission Date: 20141002
  Serious: No
  Sender: FDA-Public Use
  Company Number: US-BRISTOL-MYERS SQUIBB COMPANY-14492433

PATIENT
  Age: 62 Year
  Sex: Female
  Weight: 62.58 kg

DRUGS (11)
  1. ORENCIA [Suspect]
     Indication: RHEUMATOID ARTHRITIS
     Dosage: NUMBER OF INFUSION=7,LAST INFUSION ON 13JAN09.
     Route: 042
  2. TEGRETOL [Concomitant]
  3. PREDNISONE [Concomitant]
  4. METHOTREXATE [Concomitant]
  5. NEXIUM [Concomitant]
  6. OMEGA 3 FATTY ACID [Concomitant]
  7. OS-CAL [Concomitant]
  8. VITAMIN C [Concomitant]
  9. VITAMIN D [Concomitant]
  10. CARBAMAZEPINE [Concomitant]
  11. VITAMIN B12 [Concomitant]

REACTIONS (7)
  - Herpes virus infection [Unknown]
  - Oropharyngeal pain [Unknown]
  - Cough [Unknown]
  - Sneezing [Unknown]
  - Headache [Unknown]
  - Asthenia [Unknown]
  - Eye infection [Unknown]
